FAERS Safety Report 9796786 (Version 2)
Quarter: 2014Q1

REPORT INFORMATION
  Report Type: Spontaneous
  Country: US (occurrence: US)
  Receive Date: 20140103
  Receipt Date: 20140109
  Transmission Date: 20141002
  Serious: Yes (Hospitalization, Other)
  Sender: FDA-Public Use
  Company Number: US-GILEAD-2014-0091131

PATIENT
  Age: 33 Year
  Sex: Female

DRUGS (2)
  1. LETAIRIS [Suspect]
     Indication: PULMONARY HYPERTENSION
     Dosage: 10 MG, QD
     Route: 048
     Dates: start: 20130916
  2. LETAIRIS [Suspect]
     Indication: SICKLE CELL ANAEMIA

REACTIONS (2)
  - Sickle cell anaemia [Unknown]
  - Pulmonary embolism [Unknown]
